FAERS Safety Report 10145649 (Version 2)
Quarter: 2014Q2

REPORT INFORMATION
  Report Type: Report from Study
  Country: AU (occurrence: AU)
  Receive Date: 20140501
  Receipt Date: 20140501
  Transmission Date: 20141212
  Serious: Yes (Other)
  Sender: FDA-Public Use
  Company Number: PHHY2014AU047142

PATIENT
  Sex: 0

DRUGS (2)
  1. GLIVEC [Suspect]
     Indication: GASTROINTESTINAL STROMAL TUMOUR
     Dosage: 600 MG, UNK
  2. GLIVEC [Suspect]
     Dosage: 200 MG + 600 MG, UNK

REACTIONS (10)
  - Arteriosclerosis coronary artery [Unknown]
  - Emphysema [Unknown]
  - Hepatic lesion [Unknown]
  - Renal cyst [Recovering/Resolving]
  - Cholelithiasis [Unknown]
  - Vascular calcification [Unknown]
  - Exposure to chemical pollution [Unknown]
  - Pleural fibrosis [Unknown]
  - Lymphadenopathy [Unknown]
  - Chromosome analysis abnormal [Unknown]
